FAERS Safety Report 25871672 (Version 1)
Quarter: 2025Q4

REPORT INFORMATION
  Report Type: Spontaneous
  Country: JP (occurrence: JP)
  Receive Date: 20251001
  Receipt Date: 20251001
  Transmission Date: 20260118
  Serious: Yes (Death)
  Sender: EAGLE
  Company Number: JP-EAGLE PHARMACEUTICALS, INC.-JP-2025EAG000118

PATIENT

DRUGS (1)
  1. REMIMAZOLAM [Suspect]
     Active Substance: REMIMAZOLAM
     Indication: General anaesthesia
     Dosage: UNK
     Route: 042

REACTIONS (1)
  - Cardiac arrest [Fatal]

NARRATIVE: CASE EVENT DATE: 20250915
